FAERS Safety Report 24336752 (Version 2)
Quarter: 2024Q4

REPORT INFORMATION
  Report Type: Spontaneous
  Country: IR (occurrence: IR)
  Receive Date: 20240919
  Receipt Date: 20241028
  Transmission Date: 20250115
  Serious: Yes (Death, Other)
  Sender: REGENERON
  Company Number: IR-BAYER-2024A132398

PATIENT
  Sex: Male

DRUGS (1)
  1. EYLEA [Suspect]
     Active Substance: AFLIBERCEPT
     Indication: Retinal detachment
     Dosage: 2MG PER INJECTION PER EYE, SOLUTION FOR INJECTION, 40 MG/ML
     Route: 031
     Dates: start: 20170501, end: 20240521

REACTIONS (3)
  - Myocardial infarction [Fatal]
  - Chest pain [Fatal]
  - Off label use [Not Recovered/Not Resolved]

NARRATIVE: CASE EVENT DATE: 20170501
